FAERS Safety Report 9188209 (Version 1)
Quarter: 2013Q1

REPORT INFORMATION
  Report Type: Spontaneous
  Country: CO (occurrence: CO)
  Receive Date: 20130325
  Receipt Date: 20130325
  Transmission Date: 20140127
  Serious: Yes (Disabling, Other)
  Sender: FDA-Public Use
  Company Number: CO-ROXANE LABORATORIES, INC.-2013-RO-00416RO

PATIENT
  Age: 31 Year
  Sex: Male

DRUGS (4)
  1. LITHIUM CARBONATE [Suspect]
     Indication: BIPOLAR DISORDER
     Dosage: 900 MG
     Dates: start: 199212, end: 199710
  2. VALPROIC ACID [Suspect]
     Indication: BIPOLAR DISORDER
     Dates: start: 199710
  3. VALPROIC ACID [Suspect]
     Dosage: 250 MG
  4. FLUOXETINE [Suspect]
     Dosage: 20 MG

REACTIONS (2)
  - Neurotoxicity [Unknown]
  - Toxicity to various agents [Unknown]
